FAERS Safety Report 11431123 (Version 2)
Quarter: 2015Q4

REPORT INFORMATION
  Report Type: Report from Study
  Country: CH (occurrence: CH)
  Receive Date: 20150828
  Receipt Date: 20151012
  Transmission Date: 20160304
  Serious: Yes (Death, Other)
  Sender: FDA-Public Use
  Company Number: PHHY2015CH065823

PATIENT
  Age: 44 Year
  Sex: Female
  Weight: 50 kg

DRUGS (2)
  1. LDK378 [Suspect]
     Active Substance: CERITINIB
     Dosage: 600 MG
     Route: 048
     Dates: end: 20150723
  2. LDK378 [Suspect]
     Active Substance: CERITINIB
     Indication: LUNG ADENOCARCINOMA METASTATIC
     Dosage: 750 MG
     Route: 048
     Dates: start: 20150302

REACTIONS (6)
  - Decreased appetite [Not Recovered/Not Resolved]
  - Metastases to meninges [Unknown]
  - Lung adenocarcinoma metastatic [Fatal]
  - Metastases to central nervous system [Fatal]
  - Weight decreased [Unknown]
  - Malignant neoplasm progression [Fatal]

NARRATIVE: CASE EVENT DATE: 20150723
